FAERS Safety Report 19194900 (Version 1)
Quarter: 2021Q2

REPORT INFORMATION
  Report Type: Spontaneous
  Country: US (occurrence: US)
  Receive Date: 20210429
  Receipt Date: 20210429
  Transmission Date: 20210717
  Serious: No
  Sender: FDA-Public Use
  Company Number: US-TAKEDA-2021TUS025726

PATIENT
  Sex: Female
  Weight: 69 kg

DRUGS (1)
  1. GAMMAGARD LIQUID [Suspect]
     Active Substance: HUMAN IMMUNOGLOBULIN G
     Indication: DERMATOMYOSITIS
     Dosage: 72 GRAM, 2/WEEK
     Route: 042
     Dates: start: 202008

REACTIONS (2)
  - Product use in unapproved indication [Unknown]
  - No adverse event [Unknown]
